FAERS Safety Report 5355131-9 (Version None)
Quarter: 2007Q2

REPORT INFORMATION
  Report Type: 
  Country: None (occurrence: None)
  Receive Date: 20070531
  Receipt Date: 20060823
  Transmission Date: 20071010
  Serious: Yes (Hospitalization)
  Sender: FDA-Public Use
  Company Number: PHEH2006US10811

PATIENT
  Age: 27 Year
  Sex: Male

DRUGS (1)
  1. DESFERAL [Suspect]
     Indication: IRON OVERLOAD

REACTIONS (6)
  - EYE DISORDER [None]
  - HYPOAESTHESIA FACIAL [None]
  - MUCORMYCOSIS [None]
  - PAIN [None]
  - SINUSITIS [None]
  - SWELLING FACE [None]
